FAERS Safety Report 9483757 (Version 1)
Quarter: 2013Q3

REPORT INFORMATION
  Report Type: Spontaneous
  Country: US (occurrence: US)
  Receive Date: 20130828
  Receipt Date: 20130828
  Transmission Date: 20140515
  Serious: Yes (Death)
  Sender: FDA-Public Use
  Company Number: US-AMGEN-KDL324093

PATIENT
  Sex: Female
  Weight: 47.7 kg

DRUGS (1)
  1. PROCRIT [Suspect]
     Indication: ANAEMIA
     Dosage: UNK UNK, UNK
     Route: 065
     Dates: end: 200808

REACTIONS (1)
  - Pneumonia [Fatal]
